FAERS Safety Report 19503343 (Version 2)
Quarter: 2021Q3

REPORT INFORMATION
  Report Type: Spontaneous
  Country: US (occurrence: US)
  Receive Date: 20210708
  Receipt Date: 20210802
  Transmission Date: 20211014
  Serious: Yes (Hospitalization, Other)
  Sender: FDA-Public Use
  Company Number: US-EPICPHARMA-US-2021EPCSPO00700

PATIENT
  Age: 92 Year
  Sex: Male

DRUGS (1)
  1. ALUMINUM SULFATE/CALCIUM ACETATE ASTRINGENT SOLUTION [Suspect]
     Active Substance: ALUMINUM SULFATE\CALCIUM ACETATE
     Indication: RASH
     Route: 048

REACTIONS (3)
  - Accidental exposure to product [Unknown]
  - Incorrect route of product administration [Unknown]
  - Pneumonia [Unknown]
